FAERS Safety Report 8035802-6 (Version None)
Quarter: 2012Q1

REPORT INFORMATION
  Report Type: 
  Country: None (occurrence: None)
  Receive Date: 20120111
  Receipt Date: 20120103
  Transmission Date: 20120608
  Serious: Yes (Hospitalization, Other)
  Sender: FDA-Public Use
  Company Number: US-BAYER-2011-034595

PATIENT
  Age: 30 Year
  Sex: Female
  Weight: 89 kg

DRUGS (8)
  1. TYLENOL (CAPLET) [Concomitant]
     Indication: PAIN
     Dosage: UNK UNK, PRN
     Route: 048
     Dates: start: 20100219
  2. FLUCONAZOLE [Concomitant]
     Dosage: UNK
     Route: 048
     Dates: start: 20100115
  3. VITAMINS WITH MINERALS [Concomitant]
     Dosage: UNK
     Route: 048
     Dates: start: 20091212
  4. HUMULIN INSULIN (NOS) [Concomitant]
     Indication: DIABETES MELLITUS
     Dosage: UNK
     Route: 058
     Dates: start: 20100101
  5. PROMETHAZINE HYDROCHLORIDE [Concomitant]
     Indication: VOMITING
  6. YAZ [Suspect]
     Indication: CONTRACEPTION
     Dosage: UNK
     Dates: start: 20090401, end: 20090801
  7. PROMETHAZINE HYDROCHLORIDE [Concomitant]
     Indication: NAUSEA
     Dosage: UNK
     Route: 048
     Dates: start: 20091212
  8. METRONIDAZOLE [Concomitant]
     Dosage: UNK
     Route: 048
     Dates: start: 20100115

REACTIONS (6)
  - MAJOR DEPRESSION [None]
  - PULMONARY EMBOLISM [None]
  - PAIN [None]
  - ANXIETY [None]
  - CHEST PAIN [None]
  - PULMONARY HYPERTENSION [None]
